FAERS Safety Report 18192486 (Version 1)
Quarter: 2020Q3

REPORT INFORMATION
  Report Type: Spontaneous
  Country: US (occurrence: US)
  Receive Date: 20200825
  Receipt Date: 20200825
  Transmission Date: 20201103
  Serious: No
  Sender: FDA-Public Use
  Company Number: US-LEXICON PHARMACEUTICALS, INC-20-1606-00656

PATIENT
  Age: 51 Year
  Sex: Female

DRUGS (1)
  1. XERMELO [Suspect]
     Active Substance: TELOTRISTAT ETHYL
     Indication: CARCINOID SYNDROME
     Dates: start: 20200801

REACTIONS (3)
  - Abdominal discomfort [Unknown]
  - Off label use [Not Recovered/Not Resolved]
  - Treatment noncompliance [Recovered/Resolved]
